FAERS Safety Report 11146051 (Version 1)
Quarter: 2015Q2

REPORT INFORMATION
  Report Type: Spontaneous
  Country: US (occurrence: None)
  Receive Date: 20150527
  Receipt Date: 20150527
  Transmission Date: 20150821
  Serious: Yes (Disabling)
  Sender: FDA-Public Use
  Company Number: None

PATIENT
  Age: 71 Year
  Sex: Female
  Weight: 64.86 kg

DRUGS (8)
  1. JANUVIA [Concomitant]
     Active Substance: SITAGLIPTIN PHOSPHATE
  2. LYRICA [Concomitant]
     Active Substance: PREGABALIN
  3. ALEVE [Concomitant]
     Active Substance: NAPROXEN SODIUM
  4. MOTRIN [Concomitant]
     Active Substance: IBUPROFEN
  5. MATZIM LA [Concomitant]
     Active Substance: DILTIAZEM HYDROCHLORIDE
  6. TRAMADOL [Concomitant]
     Active Substance: TRAMADOL
  7. CRESTOR [Suspect]
     Active Substance: ROSUVASTATIN CALCIUM
     Indication: BLOOD CHOLESTEROL
     Dosage: BY MOUTH
     Dates: start: 201408, end: 201408
  8. METFORMIN [Concomitant]
     Active Substance: METFORMIN HYDROCHLORIDE

REACTIONS (9)
  - Weight decreased [None]
  - Constipation [None]
  - Myalgia [None]
  - Muscular weakness [None]
  - Impaired driving ability [None]
  - Hypoaesthesia [None]
  - Headache [None]
  - Unemployment [None]
  - Musculoskeletal stiffness [None]

NARRATIVE: CASE EVENT DATE: 201408
